FAERS Safety Report 20444270 (Version 1)
Quarter: 2022Q1

REPORT INFORMATION
  Report Type: Spontaneous
  Country: BR (occurrence: BR)
  Receive Date: 20220208
  Receipt Date: 20220208
  Transmission Date: 20220424
  Serious: Yes (Life-Threatening, Other)
  Sender: FDA-Public Use
  Company Number: BR-PFIZER INC-202200163907

PATIENT
  Age: 76 Year
  Sex: Female

DRUGS (3)
  1. SERTRALINE HYDROCHLORIDE [Suspect]
     Active Substance: SERTRALINE HYDROCHLORIDE
     Dosage: UNK
     Dates: start: 2020
  2. PURAN [Concomitant]
     Active Substance: LEVOTHYROXINE SODIUM
     Dosage: UNK
  3. LEVOTHYROXINE [Concomitant]
     Active Substance: LEVOTHYROXINE
     Dosage: UNK

REACTIONS (7)
  - Blood pressure decreased [Unknown]
  - Feeling cold [Unknown]
  - Feeling abnormal [Unknown]
  - Meningioma [Unknown]
  - Glaucoma [Unknown]
  - Morphoea [Unknown]
  - Illness [Unknown]

NARRATIVE: CASE EVENT DATE: 20200101
